FAERS Safety Report 5962523-3 (Version None)
Quarter: 2008Q4

REPORT INFORMATION
  Report Type: 
  Country: None (occurrence: None)
  Receive Date: 20081121
  Receipt Date: 20081110
  Transmission Date: 20090506
  Serious: Yes (Other)
  Sender: FDA-Public Use
  Company Number: US-PFIZER INC-2008095392

PATIENT

DRUGS (2)
  1. LYRICA [Suspect]
  2. EFFEXOR [Concomitant]

REACTIONS (1)
  - TARDIVE DYSKINESIA [None]
